FAERS Safety Report 26149968 (Version 1)
Quarter: 2025Q4

REPORT INFORMATION
  Report Type: Report from Study
  Country: CA (occurrence: CA)
  Receive Date: 20251212
  Receipt Date: 20251212
  Transmission Date: 20260118
  Serious: Yes (Other)
  Sender: TEVA
  Company Number: CA-TEVA-VS-3402018

PATIENT
  Age: 82 Year
  Sex: Female

DRUGS (1)
  1. AMBRISENTAN [Suspect]
     Active Substance: AMBRISENTAN
     Indication: Pulmonary arterial hypertension
     Route: 065

REACTIONS (6)
  - Abdominal distension [Unknown]
  - Cataract operation [Unknown]
  - Joint swelling [Unknown]
  - Weight increased [Unknown]
  - Nasal congestion [Unknown]
  - Dyspnoea [Unknown]
